FAERS Safety Report 12953531 (Version 2)
Quarter: 2017Q2

REPORT INFORMATION
  Report Type: Spontaneous
  Country: FR (occurrence: FR)
  Receive Date: 20161118
  Receipt Date: 20170420
  Transmission Date: 20170830
  Serious: Yes (Hospitalization, Other)
  Sender: FDA-Public Use
  Company Number: FR-BAXTER-2016BAX057124

PATIENT
  Age: 62 Year
  Sex: Female

DRUGS (9)
  1. EPIRUBICINE MYLAN [Suspect]
     Active Substance: EPIRUBICIN
     Indication: BREAST CANCER
     Dosage: CUMULATIVE DOSE: 465 MG, ONCE PER CYCLE
     Route: 042
     Dates: start: 2014, end: 2014
  2. DOXORUBICIN [Suspect]
     Active Substance: DOXORUBICIN
     Indication: LEIOMYOSARCOMA METASTATIC
     Dosage: CUMULATIVE DOSE: 368 MG, ONCE PER CYCLE
     Route: 042
     Dates: start: 201604, end: 201606
  3. DOCETAXEL HOSPIRA [Suspect]
     Active Substance: DOCETAXEL
     Indication: BREAST CANCER
     Dosage: CUMULATIVE DOSE: 480 MG, STOPPED MORE THAN 2 YEARS BEFORE THE EVENTS, ONCE PER CYCLE
     Route: 042
     Dates: start: 20140516
  4. ENDOXAN 1000 MG, POUDRE POUR SOLUTION INJECTABLE [Suspect]
     Active Substance: CYCLOPHOSPHAMIDE
     Indication: BREAST CANCER
     Dosage: CUMULATIVE DOSE: 2340 MG, ONCE PER CYCLE
     Route: 042
     Dates: start: 2014, end: 2014
  5. VOTRIENT [Suspect]
     Active Substance: PAZOPANIB HYDROCHLORIDE
     Indication: LEIOMYOSARCOMA METASTATIC
     Dosage: ONCE DAILY
     Route: 048
     Dates: start: 201606, end: 201610
  6. HERCEPTIN [Suspect]
     Active Substance: TRASTUZUMAB
     Indication: BREAST CANCER
     Dosage: CUMULATIVE DOSE: 6210 MG, STOPPED MORE THAN A YEAR BEFORE THE EVENTS, ONCE PER CYCLE
     Route: 042
     Dates: start: 20140516
  7. FLUOROURACILE ACCORD [Suspect]
     Active Substance: FLUOROURACIL
     Indication: BREAST CANCER
     Dosage: CUMULATIVE DOSE: 2340 MG, ONCE PER CYCLE
     Route: 042
     Dates: start: 201403
  8. LEVOTHYROX [Concomitant]
     Active Substance: LEVOTHYROXINE
     Indication: PRODUCT USED FOR UNKNOWN INDICATION
     Dosage: LONG TERM TREATMENT
     Route: 048
  9. LETROZOLE MYLAN [Suspect]
     Active Substance: LETROZOLE
     Indication: PRODUCT USED FOR UNKNOWN INDICATION
     Dosage: ONCE DAILY
     Route: 048
     Dates: start: 201409

REACTIONS (5)
  - Congestive cardiomyopathy [Not Recovered/Not Resolved]
  - Pleural effusion [Unknown]
  - Cardiac failure [Recovering/Resolving]
  - Pericardial effusion [Unknown]
  - Intracardiac thrombus [Unknown]

NARRATIVE: CASE EVENT DATE: 201609
